FAERS Safety Report 5822294-8 (Version None)
Quarter: 2008Q3

REPORT INFORMATION
  Report Type: 
  Country: None (occurrence: None)
  Receive Date: 20080725
  Receipt Date: 20080428
  Transmission Date: 20090109
  Serious: No
  Sender: FDA-Public Use
  Company Number: US-AMGEN-US112696

PATIENT
  Sex: Female
  Weight: 57.8 kg

DRUGS (10)
  1. EPOGEN [Suspect]
     Indication: DIALYSIS
     Route: 058
     Dates: start: 19990301
  2. SENSIPAR [Concomitant]
     Indication: HYPERPARATHYROIDISM SECONDARY
     Route: 048
  3. COREG [Concomitant]
     Route: 048
     Dates: start: 20030626
  4. HECTORAL [Concomitant]
     Route: 042
     Dates: start: 20050122
  5. DIGOXIN [Concomitant]
     Route: 048
     Dates: start: 20041101
  6. RENAGEL [Concomitant]
     Route: 048
     Dates: start: 20040514
  7. SODIUM BICARBONATE [Concomitant]
     Route: 048
     Dates: start: 20030724
  8. VENOFER [Concomitant]
     Route: 065
     Dates: start: 20010621, end: 20080401
  9. NIFEREX [Concomitant]
     Route: 065
     Dates: start: 19990726, end: 20000526
  10. ZEMPLAR [Concomitant]

REACTIONS (1)
  - THERAPEUTIC RESPONSE DECREASED [None]
